FAERS Safety Report 4646331-1 (Version None)
Quarter: 2005Q2

REPORT INFORMATION
  Report Type: 
  Country: None (occurrence: None)
  Receive Date: 20050422
  Receipt Date: 20050412
  Transmission Date: 20051028
  Serious: Yes (Hospitalization)
  Sender: FDA-Public Use
  Company Number: 05P-167-0297477-00

PATIENT
  Age: 59 Year
  Sex: Male
  Weight: 85 kg

DRUGS (3)
  1. HUMIRA [Suspect]
     Indication: RHEUMATOID ARTHRITIS
     Dosage: 40 MG, 1 IN 2 WK
     Dates: start: 20041101, end: 20050106
  2. ARCOXIN [Concomitant]
  3. ACETAMINOPHEN [Concomitant]

REACTIONS (4)
  - CHEST PAIN [None]
  - HYPERHIDROSIS [None]
  - PLEURAL EFFUSION [None]
  - PYREXIA [None]
